FAERS Safety Report 8204391-5 (Version None)
Quarter: 2012Q1

REPORT INFORMATION
  Report Type: 
  Country: None (occurrence: None)
  Receive Date: 20120313
  Receipt Date: 20120313
  Transmission Date: 20120608
  Serious: Yes (Other)
  Sender: FDA-Public Use
  Company Number: None

PATIENT
  Age: 4 Year
  Sex: Male
  Weight: 19.05 kg

DRUGS (1)
  1. SINGULAIR [Suspect]
     Indication: ASTHMA
     Dosage: 1 CHEWABLE
     Route: 048
     Dates: start: 20090101, end: 20120310

REACTIONS (4)
  - PANIC ATTACK [None]
  - AGGRESSION [None]
  - ABNORMAL BEHAVIOUR [None]
  - MOOD ALTERED [None]
